FAERS Safety Report 6617797-2 (Version None)
Quarter: 2010Q1

REPORT INFORMATION
  Report Type: 
  Country: None (occurrence: None)
  Receive Date: 20100223
  Receipt Date: 20091109
  Transmission Date: 20100710
  Serious: Yes (Life-Threatening, Hospitalization)
  Sender: FDA-Public Use
  Company Number: 8054336

PATIENT
  Sex: Male
  Weight: 78.8 kg

DRUGS (2)
  1. CERTOLIZUMAB PEGOL (UCB, INC.) [Suspect]
     Indication: CROHN'S DISEASE
     Dosage: 400 MG, ONCE MONTHLY SUBCUTANEOUS
     Route: 058
     Dates: start: 20090708
  2. IMURAN [Concomitant]

REACTIONS (3)
  - DIPLOPIA [None]
  - HEADACHE [None]
  - SMALL INTESTINAL OBSTRUCTION [None]
